FAERS Safety Report 16012911 (Version 1)
Quarter: 2019Q1

REPORT INFORMATION
  Report Type: Spontaneous
  Country: US (occurrence: US)
  Receive Date: 20190227
  Receipt Date: 20190227
  Transmission Date: 20190418
  Serious: No
  Sender: FDA-Public Use
  Company Number: None

PATIENT
  Age: 45 Year
  Sex: Male
  Weight: 68 kg

DRUGS (3)
  1. OTC ANTI-COUGH MEDICINE [Concomitant]
  2. BENZONATATE 100 MG CAPSULE [Suspect]
     Active Substance: BENZONATATE
     Indication: COUGH
     Dosage: ?          QUANTITY:1 CAPSULE(S);?
     Route: 048
     Dates: start: 20190224, end: 20190227
  3. ORAL ANTIBIOTICS [Concomitant]
     Active Substance: UNSPECIFIED INGREDIENT

REACTIONS (5)
  - Somnolence [None]
  - Dizziness [None]
  - Nausea [None]
  - Fatigue [None]
  - Vertigo [None]

NARRATIVE: CASE EVENT DATE: 20190227
